FAERS Safety Report 4771448-0 (Version None)
Quarter: 2005Q3

REPORT INFORMATION
  Report Type: 
  Country: None (occurrence: None)
  Receive Date: 20050915
  Receipt Date: 20050901
  Transmission Date: 20060218
  Serious: Yes (Hospitalization, Other)
  Sender: FDA-Public Use
  Company Number: 2005123238

PATIENT
  Age: 42 Year
  Sex: Male
  Weight: 141.9759 kg

DRUGS (17)
  1. CADUET [Suspect]
     Indication: BLOOD CHOLESTEROL INCREASED
     Dosage: 5/20 (1 IN 1 D), ORAL
     Route: 048
  2. NORVASC [Suspect]
     Indication: ILL-DEFINED DISORDER
     Dosage: 5 MG (5 MG, 1 IN 1 D), ORAL
     Route: 048
     Dates: start: 20020101
  3. LIPITOR [Suspect]
     Indication: BLOOD CHOLESTEROL INCREASED
     Dosage: 10 MG (10 MG, 1 IN 1 D), ORAL
     Route: 048
     Dates: start: 20020101
  4. GLUCOTROL XL [Suspect]
     Indication: DIABETES MELLITUS
     Dosage: 20 MG (10 MG, 2 IN 1 D), ORAL
     Route: 048
     Dates: start: 20020101
  5. GLIPIZIDE [Suspect]
     Indication: DIABETES MELLITUS
     Dosage: 20 MG(10 MG, 2 IN 1 1 D), ORAL
     Route: 048
     Dates: start: 20020101
  6. LASIX [Concomitant]
  7. WELLBUTRIN [Concomitant]
  8. LOPRESSOR [Concomitant]
  9. DIGOXIN [Concomitant]
  10. IMDUR [Concomitant]
  11. COMBIVENT [Concomitant]
  12. ASPIRIN [Concomitant]
  13. NITROQUICK (GLYCERYL TRINITRATE) [Concomitant]
  14. TOPROL-XL [Concomitant]
  15. GLUCOPHAGE [Concomitant]
  16. SEREVENT [Concomitant]
  17. VALIUM [Concomitant]

REACTIONS (7)
  - BLOOD PRESSURE INCREASED [None]
  - CARDIAC PACEMAKER INSERTION [None]
  - CATHETERISATION CARDIAC ABNORMAL [None]
  - CHEST PAIN [None]
  - ECONOMIC PROBLEM [None]
  - IMPLANTABLE DEFIBRILLATOR INSERTION [None]
  - TREATMENT NONCOMPLIANCE [None]
